FAERS Safety Report 7071177-7 (Version None)
Quarter: 2010Q4

REPORT INFORMATION
  Report Type: 
  Country: None (occurrence: None)
  Receive Date: 20101029
  Receipt Date: 20101018
  Transmission Date: 20110411
  Serious: Yes (Other)
  Sender: FDA-Public Use
  Company Number: US-JNJFOC-20101004966

PATIENT
  Sex: Female
  Weight: 85.73 kg

DRUGS (2)
  1. REMICADE [Suspect]
     Indication: CROHN'S DISEASE
     Dosage: 5-10 MG/KG
     Route: 042
  2. METHOTREXATE [Concomitant]

REACTIONS (6)
  - FISTULA [None]
  - INTESTINAL STENOSIS [None]
  - POSTOPERATIVE ABSCESS [None]
  - STAPHYLOCOCCAL INFECTION [None]
  - SWELLING [None]
  - TENDERNESS [None]
